FAERS Safety Report 5768766-6 (Version None)
Quarter: 2008Q2

REPORT INFORMATION
  Report Type: 
  Country: None (occurrence: None)
  Receive Date: 20080610
  Receipt Date: 20080603
  Transmission Date: 20081010
  Serious: Yes (Life-Threatening, Other)
  Sender: FDA-Public Use
  Company Number: 150-C5013-08010522

PATIENT
  Age: 62 Year
  Sex: Female
  Weight: 60 kg

DRUGS (5)
  1. CC-5013 (LENALIDOMIDE) (CAPSULES) [Suspect]
     Indication: 5Q-SYNDROME
     Dosage: ORAL
     Route: 048
     Dates: start: 20060109, end: 20071213
  2. AZACITIDINE (AZACITIDINE) [Concomitant]
  3. DESFERASIROX (DEFERASIROX) [Concomitant]
  4. MIDAZOLAM HCL [Concomitant]
  5. TINZAPANNATRIUM (HEPARIN-FRACTION, SODIUM SALT) [Concomitant]

REACTIONS (3)
  - ACUTE MYELOID LEUKAEMIA [None]
  - DRUG INEFFECTIVE [None]
  - THROMBOCYTOPENIA [None]
